FAERS Safety Report 16014544 (Version 1)
Quarter: 2019Q1

REPORT INFORMATION
  Report Type: Spontaneous
  Country: DE (occurrence: DE)
  Receive Date: 20190227
  Receipt Date: 20190227
  Transmission Date: 20190418
  Serious: Yes (Other)
  Sender: FDA-Public Use
  Company Number: DE-MYLANLABS-2019M1018336

PATIENT
  Sex: Male

DRUGS (1)
  1. CANDESARTANCILEXETIL/HCT MYLAN 32 MG/25 MG TABLETTEN [Suspect]
     Active Substance: CANDESARTAN CILEXETIL\HYDROCHLOROTHIAZIDE
     Indication: PRODUCT USED FOR UNKNOWN INDICATION

REACTIONS (6)
  - Disorientation [Unknown]
  - Deafness [Unknown]
  - Memory impairment [Unknown]
  - Hyperhidrosis [Unknown]
  - Nausea [Unknown]
  - Dizziness [Unknown]
